FAERS Safety Report 6706060-7 (Version None)
Quarter: 2010Q2

REPORT INFORMATION
  Report Type: 
  Country: None (occurrence: None)
  Receive Date: 20100503
  Receipt Date: 20100421
  Transmission Date: 20101027
  Serious: Yes (Death)
  Sender: FDA-Public Use
  Company Number: JP-SANOFI-AVENTIS-200912715JP

PATIENT
  Age: 78 Year
  Sex: Male
  Weight: 53 kg

DRUGS (5)
  1. DOCETAXEL [Suspect]
     Dosage: EVERY TWO WEEKS DOSE:40
     Route: 041
     Dates: start: 20090603, end: 20090909
  2. DEXAMETHASONE [Concomitant]
     Indication: PREMEDICATION
     Dosage: EVERY TWO WEEKS
     Route: 048
     Dates: start: 20090603, end: 20090909
  3. KYTRIL [Concomitant]
     Indication: PREMEDICATION
     Dates: start: 20090603, end: 20090909
  4. DEXAMETHASONE [Concomitant]
     Route: 048
     Dates: start: 20090909, end: 20090912
  5. ONDANSETRON HYDROCHLORIDE [Concomitant]
     Dosage: 1 TABLET
     Route: 048
     Dates: start: 20090909, end: 20090912

REACTIONS (1)
  - INTERSTITIAL LUNG DISEASE [None]
